FAERS Safety Report 18486161 (Version 1)
Quarter: 2020Q4

REPORT INFORMATION
  Report Type: Spontaneous
  Country: DE (occurrence: DE)
  Receive Date: 20201110
  Receipt Date: 20201110
  Transmission Date: 20210114
  Serious: Yes (Life-Threatening, Hospitalization, Other)
  Sender: FDA-Public Use
  Company Number: DE-SA-2020SA314258

PATIENT

DRUGS (8)
  1. METFORMIN HYDROCHLORIDE. [Suspect]
     Active Substance: METFORMIN HYDROCHLORIDE
     Dosage: 850 MG, 1-0-0-0
     Route: 065
  2. LEVETIRACETAM. [Concomitant]
     Active Substance: LEVETIRACETAM
     Dosage: 500 MG, 1-0-1-0
     Route: 065
  3. APIDRA [Suspect]
     Active Substance: INSULIN GLULISINE
     Dosage: 12 IU, 1-1-1-0
     Route: 065
  4. SUBUTEX [Concomitant]
     Active Substance: BUPRENORPHINE HYDROCHLORIDE
     Dosage: 16 MG, 1-0-0-0
     Route: 065
  5. MIRTAZAPIN [Concomitant]
     Active Substance: MIRTAZAPINE
     Dosage: 30 MG, 0-0-0-1
     Route: 048
  6. GABAPENTIN. [Concomitant]
     Active Substance: GABAPENTIN
     Dosage: 300 MG, 1-1-1-0
     Route: 065
  7. LANTUS [Suspect]
     Active Substance: INSULIN GLARGINE
     Dosage: 10 IU, 0-0-0-1
     Route: 065
  8. SITAGLIPTIN [Suspect]
     Active Substance: SITAGLIPTIN
     Dosage: 50 MG, 1-0-0-0

REACTIONS (3)
  - Loss of consciousness [Unknown]
  - Hypoglycaemia [Unknown]
  - Depressed level of consciousness [Unknown]
